FAERS Safety Report 14630777 (Version 3)
Quarter: 2018Q1

REPORT INFORMATION
  Report Type: Spontaneous
  Country: US (occurrence: US)
  Receive Date: 20180313
  Receipt Date: 20180328
  Transmission Date: 20180509
  Serious: Yes (Other)
  Sender: FDA-Public Use
  Company Number: US-PFIZER INC-2018102780

PATIENT
  Age: 44 Year
  Sex: Female
  Weight: 115.65 kg

DRUGS (3)
  1. LYRICA [Suspect]
     Active Substance: PREGABALIN
     Indication: NERVE INJURY
     Dosage: 150 MG, 2X/DAY [TWICE A DAY]
  2. LYRICA [Suspect]
     Active Substance: PREGABALIN
     Indication: EPILEPSY
  3. LYRICA [Suspect]
     Active Substance: PREGABALIN
     Indication: BACK PAIN

REACTIONS (6)
  - Cyst [Not Recovered/Not Resolved]
  - Injury [Unknown]
  - Haemorrhage [Unknown]
  - Drug prescribing error [Unknown]
  - Drug dispensing error [Unknown]
  - Seizure [Unknown]

NARRATIVE: CASE EVENT DATE: 20180321
